FAERS Safety Report 9906659 (Version 1)
Quarter: 2014Q1

REPORT INFORMATION
  Report Type: Report from Study
  Country: CN (occurrence: CN)
  Receive Date: 20140218
  Receipt Date: 20140218
  Transmission Date: 20141002
  Serious: Yes (Other)
  Sender: FDA-Public Use
  Company Number: CN-SA-2014SA017760

PATIENT
  Sex: Female

DRUGS (3)
  1. OXALIPLATIN [Suspect]
     Indication: METASTATIC GASTRIC CANCER
     Dosage: H0-H6. Q7D-10DX2-3/6-8 W/CYCLE.
     Route: 013
  2. FLUOROURACIL [Suspect]
     Indication: METASTATIC GASTRIC CANCER
     Dosage: H6-H48. Q7D-10DX2-3/6-8 W/CYCLE.
     Route: 013
  3. LEUCOVORIN [Suspect]
     Indication: METASTATIC GASTRIC CANCER
     Dosage: IVGT, H4-H6. Q7D-10DX2-3/6-8 W/CYCLE.
     Route: 042

REACTIONS (1)
  - Acute myocardial infarction [Unknown]
